FAERS Safety Report 8078593-5 (Version None)
Quarter: 2012Q1

REPORT INFORMATION
  Report Type: 
  Country: None (occurrence: None)
  Receive Date: 20120124
  Receipt Date: 20120111
  Transmission Date: 20120608
  Serious: Yes (Hospitalization)
  Sender: FDA-Public Use
  Company Number: CA-007497

PATIENT
  Age: 68 Year
  Sex: Male

DRUGS (1)
  1. FIRMAGON [Suspect]
     Indication: PROSTATE CANCER
     Dosage: 80 MG 1X/MONTH, SUBCUTANEOUS
     Route: 058
     Dates: start: 20110817, end: 20111208

REACTIONS (2)
  - ABASIA [None]
  - GENERAL PHYSICAL HEALTH DETERIORATION [None]
